FAERS Safety Report 19614676 (Version 2)
Quarter: 2021Q3

REPORT INFORMATION
  Report Type: Spontaneous
  Country: NL (occurrence: NL)
  Receive Date: 20210727
  Receipt Date: 20210806
  Transmission Date: 20211014
  Serious: Yes (Other)
  Sender: FDA-Public Use
  Company Number: NL-TEVA-2021-NL-1936264

PATIENT
  Age: 64 Year
  Sex: Male
  Weight: 105 kg

DRUGS (5)
  1. LABETALOL TABLET 200MG / BRAND NAME NOT SPECIFIED [Suspect]
     Active Substance: LABETALOL\LABETALOL HYDROCHLORIDE
     Indication: HYPERTENSION
     Dosage: 300 MILLIGRAM DAILY; THERAPY END DATE : ASKU
     Route: 065
     Dates: start: 20210601
  2. OCTREOTIDE INJVLST 0,05MG/ML / SANDOSTATINE INJVLST 0,05MG/ML AMPUL 1M [Concomitant]
     Dosage: 0.05 MG/ML (MILLIGRAMS PER MILLILITER), THERAPY START DATE AND END DATE : ASKU
  3. PARACETAMOL / BRAND NAME NOT SPECIFIED [Concomitant]
     Dosage: 4000 MILLIGRAM DAILY; THERAPY START DATE AND END DATE : ASKU
  4. ESOMEPRAZOL CAPSULE MSR 40MG / BRAND NAME NOT SPECIFIED [Concomitant]
     Active Substance: ESOMEPRAZOLE
     Dosage: 40 MG (MILLIGRAM) , THERAPY START DATE AND END DATE : ASKU
  5. LABETALOL TABLET 200MG / BRAND NAME NOT SPECIFIED [Suspect]
     Active Substance: LABETALOL\LABETALOL HYDROCHLORIDE
     Indication: DUMPING SYNDROME
     Dosage: 600 MILLIGRAM DAILY; THERAPY START DATE AND END DATE : ASKU

REACTIONS (5)
  - Myalgia [Not Recovered/Not Resolved]
  - Headache [Not Recovered/Not Resolved]
  - Arrhythmia [Not Recovered/Not Resolved]
  - Vision blurred [Not Recovered/Not Resolved]
  - Ventricular extrasystoles [Not Recovered/Not Resolved]

NARRATIVE: CASE EVENT DATE: 20210706
